FAERS Safety Report 15664237 (Version 6)
Quarter: 2019Q3

REPORT INFORMATION
  Report Type: Spontaneous
  Country: US (occurrence: US)
  Receive Date: 20181128
  Receipt Date: 20190808
  Transmission Date: 20191004
  Serious: Yes (Other)
  Sender: FDA-Public Use
  Company Number: PHEH2018US050170

PATIENT
  Sex: Female
  Weight: 72.57 kg

DRUGS (1)
  1. ZOFRAN ODT [Suspect]
     Active Substance: ONDANSETRON HYDROCHLORIDE
     Indication: MORNING SICKNESS
     Dosage: 4 MG, QD
     Route: 048
     Dates: start: 20040120, end: 200402

REACTIONS (7)
  - Maternal exposure during pregnancy [Unknown]
  - Injury [Unknown]
  - Anxiety [Unknown]
  - Pain [Unknown]
  - Haemorrhage [Unknown]
  - Emotional distress [Unknown]
  - Product use in unapproved indication [Unknown]
